FAERS Safety Report 24811115 (Version 5)
Quarter: 2025Q1

REPORT INFORMATION
  Report Type: Spontaneous
  Country: GB (occurrence: GB)
  Receive Date: 20250106
  Receipt Date: 20250224
  Transmission Date: 20250409
  Serious: Yes (Other)
  Sender: ORGANON
  Company Number: GB-SA-2020SA314290

PATIENT
  Age: 36 Year
  Sex: Male

DRUGS (71)
  1. FINASTERIDE [Suspect]
     Active Substance: FINASTERIDE
     Indication: Product used for unknown indication
     Route: 065
  2. TAMSULOSIN HYDROCHLORIDE [Suspect]
     Active Substance: TAMSULOSIN HYDROCHLORIDE
     Indication: Product used for unknown indication
     Route: 048
  3. ATORVASTATIN CALCIUM [Suspect]
     Active Substance: ATORVASTATIN CALCIUM
     Indication: Product used for unknown indication
     Route: 048
  4. ATORVASTATIN CALCIUM [Suspect]
     Active Substance: ATORVASTATIN CALCIUM
     Route: 048
  5. AMLODIPINE BESYLATE [Suspect]
     Active Substance: AMLODIPINE BESYLATE
     Indication: Product used for unknown indication
     Route: 048
  6. AMLODIPINE BESYLATE [Suspect]
     Active Substance: AMLODIPINE BESYLATE
  7. GLIMEPIRIDE [Suspect]
     Active Substance: GLIMEPIRIDE
     Indication: Product used for unknown indication
     Route: 048
  8. GLIMEPIRIDE [Suspect]
     Active Substance: GLIMEPIRIDE
     Route: 048
  9. GLIMEPIRIDE [Suspect]
     Active Substance: GLIMEPIRIDE
     Route: 048
  10. GLIMEPIRIDE [Suspect]
     Active Substance: GLIMEPIRIDE
     Route: 048
  11. GLIMEPIRIDE [Suspect]
     Active Substance: GLIMEPIRIDE
     Route: 048
  12. GLIMEPIRIDE [Suspect]
     Active Substance: GLIMEPIRIDE
     Route: 048
  13. GLIMEPIRIDE [Suspect]
     Active Substance: GLIMEPIRIDE
     Route: 048
  14. GLIMEPIRIDE [Suspect]
     Active Substance: GLIMEPIRIDE
     Route: 048
  15. GLIMEPIRIDE [Suspect]
     Active Substance: GLIMEPIRIDE
  16. GLIMEPIRIDE [Suspect]
     Active Substance: GLIMEPIRIDE
     Route: 048
  17. INDAPAMIDE [Suspect]
     Active Substance: INDAPAMIDE
     Indication: Product used for unknown indication
     Route: 048
  18. INDAPAMIDE [Suspect]
     Active Substance: INDAPAMIDE
     Route: 048
  19. INDAPAMIDE [Suspect]
     Active Substance: INDAPAMIDE
     Route: 048
  20. METFORMIN HYDROCHLORIDE [Suspect]
     Active Substance: METFORMIN HYDROCHLORIDE
     Indication: Product used for unknown indication
     Route: 048
  21. METFORMIN HYDROCHLORIDE [Suspect]
     Active Substance: METFORMIN HYDROCHLORIDE
     Indication: Product used for unknown indication
     Route: 048
  22. METFORMIN HYDROCHLORIDE [Suspect]
     Active Substance: METFORMIN HYDROCHLORIDE
     Route: 048
  23. METFORMIN HYDROCHLORIDE [Suspect]
     Active Substance: METFORMIN HYDROCHLORIDE
     Route: 048
  24. METFORMIN HYDROCHLORIDE [Suspect]
     Active Substance: METFORMIN HYDROCHLORIDE
     Route: 048
  25. FINASTERIDE\TAMSULOSIN [Suspect]
     Active Substance: FINASTERIDE\TAMSULOSIN
     Indication: Product used for unknown indication
     Route: 065
  26. PIOGLITAZONE [Suspect]
     Active Substance: PIOGLITAZONE
     Indication: Product used for unknown indication
     Route: 048
  27. PIOGLITAZONE [Suspect]
     Active Substance: PIOGLITAZONE
     Route: 048
  28. PIOGLITAZONE [Suspect]
     Active Substance: PIOGLITAZONE
     Route: 048
  29. RAMIPRIL [Suspect]
     Active Substance: RAMIPRIL
     Indication: Product used for unknown indication
     Route: 048
  30. RAMIPRIL [Suspect]
     Active Substance: RAMIPRIL
     Route: 048
  31. RAMIPRIL [Suspect]
     Active Substance: RAMIPRIL
     Route: 048
  32. CLOZAPINE [Suspect]
     Active Substance: CLOZAPINE
     Indication: Schizophrenia
     Route: 048
     Dates: start: 20181121, end: 20220317
  33. CLOZAPINE [Suspect]
     Active Substance: CLOZAPINE
     Route: 048
     Dates: start: 20220317
  34. CLOZAPINE [Suspect]
     Active Substance: CLOZAPINE
     Route: 048
  35. CLOZAPINE [Suspect]
     Active Substance: CLOZAPINE
     Route: 048
     Dates: start: 20220317
  36. QUETIAPINE FUMARATE [Suspect]
     Active Substance: QUETIAPINE FUMARATE
     Indication: Product used for unknown indication
     Route: 048
  37. QUETIAPINE FUMARATE [Suspect]
     Active Substance: QUETIAPINE FUMARATE
     Route: 048
  38. QUETIAPINE FUMARATE [Suspect]
     Active Substance: QUETIAPINE FUMARATE
  39. AMLODIPINE [Suspect]
     Active Substance: AMLODIPINE BESYLATE
     Indication: Product used for unknown indication
     Route: 048
  40. AMLODIPINE [Suspect]
     Active Substance: AMLODIPINE BESYLATE
     Route: 048
  41. AMLODIPINE [Suspect]
     Active Substance: AMLODIPINE BESYLATE
     Route: 048
  42. AMLODIPINE [Suspect]
     Active Substance: AMLODIPINE BESYLATE
     Route: 048
  43. AMLODIPINE [Suspect]
     Active Substance: AMLODIPINE BESYLATE
     Route: 048
  44. AMLODIPINE [Suspect]
     Active Substance: AMLODIPINE BESYLATE
     Route: 048
  45. AMLODIPINE [Suspect]
     Active Substance: AMLODIPINE BESYLATE
     Route: 048
  46. AMISULPRIDE [Suspect]
     Active Substance: AMISULPRIDE
     Indication: Product used for unknown indication
     Route: 048
  47. AMISULPRIDE [Suspect]
     Active Substance: AMISULPRIDE
     Route: 048
  48. QUETIAPINE FUMARATE [Suspect]
     Active Substance: QUETIAPINE FUMARATE
     Indication: Product used for unknown indication
     Route: 048
  49. METFORMIN [Suspect]
     Active Substance: METFORMIN HYDROCHLORIDE
     Indication: Product used for unknown indication
     Route: 048
  50. METFORMIN [Suspect]
     Active Substance: METFORMIN HYDROCHLORIDE
     Route: 048
  51. METFORMIN [Suspect]
     Active Substance: METFORMIN HYDROCHLORIDE
     Route: 048
  52. METFORMIN [Suspect]
     Active Substance: METFORMIN HYDROCHLORIDE
     Route: 048
  53. METFORMIN [Suspect]
     Active Substance: METFORMIN HYDROCHLORIDE
     Route: 048
  54. METFORMIN [Suspect]
     Active Substance: METFORMIN HYDROCHLORIDE
     Route: 048
  55. METFORMIN [Suspect]
     Active Substance: METFORMIN HYDROCHLORIDE
     Route: 048
  56. QUETIAPINE [Suspect]
     Active Substance: QUETIAPINE
     Indication: Product used for unknown indication
     Route: 048
  57. QUETIAPINE [Suspect]
     Active Substance: QUETIAPINE
     Route: 048
  58. QUETIAPINE [Suspect]
     Active Substance: QUETIAPINE
  59. QUETIAPINE [Suspect]
     Active Substance: QUETIAPINE
     Route: 048
  60. QUETIAPINE [Suspect]
     Active Substance: QUETIAPINE
  61. QUETIAPINE [Suspect]
     Active Substance: QUETIAPINE
     Route: 048
  62. TAMSULOSIN [Suspect]
     Active Substance: TAMSULOSIN
     Indication: Product used for unknown indication
     Route: 048
  63. TAMSULOSIN [Suspect]
     Active Substance: TAMSULOSIN
     Route: 048
  64. ATORVASTATIN [Suspect]
     Active Substance: ATORVASTATIN
     Indication: Product used for unknown indication
     Route: 048
  65. ATORVASTATIN [Suspect]
     Active Substance: ATORVASTATIN
     Route: 048
  66. ATORVASTATIN [Suspect]
     Active Substance: ATORVASTATIN
     Route: 048
  67. TAMSULOSIN [Concomitant]
     Active Substance: TAMSULOSIN
     Indication: Product used for unknown indication
  68. TAMSULOSIN [Concomitant]
     Active Substance: TAMSULOSIN
     Route: 048
  69. TAMSULOSIN [Concomitant]
     Active Substance: TAMSULOSIN
     Route: 048
  70. ATORVASTATIN [Concomitant]
     Active Substance: ATORVASTATIN
     Indication: Product used for unknown indication
     Route: 048
  71. ATORVASTATIN [Concomitant]
     Active Substance: ATORVASTATIN
     Route: 048

REACTIONS (7)
  - Hyperthyroidism [Unknown]
  - Hallucination, visual [Unknown]
  - Type 2 diabetes mellitus [Unknown]
  - White blood cell count decreased [Recovered/Resolved]
  - Influenza [Unknown]
  - Neutropenia [Recovered/Resolved]
  - White blood cell count increased [Recovered/Resolved]
